FAERS Safety Report 23323043 (Version 1)
Quarter: 2023Q4

REPORT INFORMATION
  Report Type: Spontaneous
  Country: US (occurrence: None)
  Receive Date: 20231220
  Receipt Date: 20231220
  Transmission Date: 20240109
  Serious: No
  Sender: FDA-Public Use
  Company Number: US-ROCHE-3277359

PATIENT

DRUGS (17)
  1. RITUXAN HYCELA [Suspect]
     Active Substance: HYALURONIDASE (HUMAN RECOMBINANT)\RITUXIMAB
     Indication: B-cell lymphoma
     Dosage: 1,400 MG/23,400 UNITS, FOR 8 CYCLES
     Route: 058
     Dates: start: 20220809
  2. RITUXAN HYCELA [Suspect]
     Active Substance: HYALURONIDASE (HUMAN RECOMBINANT)\RITUXIMAB
     Route: 058
     Dates: start: 20220831
  3. RITUXAN HYCELA [Suspect]
     Active Substance: HYALURONIDASE (HUMAN RECOMBINANT)\RITUXIMAB
     Dosage: 1,400 MG/23,400 UNITS, FOR 8 CYCLES
     Route: 058
     Dates: start: 20221102
  4. ALEMTUZUMAB [Concomitant]
     Active Substance: ALEMTUZUMAB
  5. ADRIAMYCIN [Concomitant]
     Active Substance: DOXORUBICIN HYDROCHLORIDE
  6. CYTOXAN [Concomitant]
     Active Substance: CYCLOPHOSPHAMIDE
  7. BENADRYL [Concomitant]
     Active Substance: DIPHENHYDRAMINE HYDROCHLORIDE
     Dosage: PRE-MEDICATION
  8. CYCLOPHOSPHAMIDE [Concomitant]
     Active Substance: CYCLOPHOSPHAMIDE
  9. DOXORUBICIN [Concomitant]
     Active Substance: DOXORUBICIN
  10. POLATUZUMAB VEDOTIN-PIIQ [Concomitant]
     Active Substance: POLATUZUMAB VEDOTIN-PIIQ
  11. ACETAMINOPHEN [Concomitant]
     Active Substance: ACETAMINOPHEN
     Dosage: PRE-MEDICATION
  12. APREPITANT [Concomitant]
     Active Substance: APREPITANT
     Dosage: PRE-MEDICATION
  13. NEULASTA [Concomitant]
     Active Substance: PEGFILGRASTIM
     Dosage: 24 AFTER RITUXAN HYCELA
  14. DIPHENHYDRAMINE HYDROCHLORIDE [Concomitant]
     Active Substance: DIPHENHYDRAMINE HYDROCHLORIDE
  15. OLANZAPINE [Concomitant]
     Active Substance: OLANZAPINE
     Dosage: PRE-MEDICATION
  16. ONDANSETRON [Concomitant]
     Active Substance: ONDANSETRON
     Dosage: PRE-MEDICATION
  17. PREDNISONE [Concomitant]
     Active Substance: PREDNISONE
     Dosage: PRE-MEDICATION

REACTIONS (2)
  - Intercepted product storage error [Unknown]
  - No adverse event [Unknown]
